FAERS Safety Report 16487030 (Version 1)
Quarter: 2019Q2

REPORT INFORMATION
  Report Type: Spontaneous
  Country: ES (occurrence: ES)
  Receive Date: 20190627
  Receipt Date: 20190627
  Transmission Date: 20190711
  Serious: Yes (Death, Other)
  Sender: FDA-Public Use
  Company Number: ES-GILEAD-2019-0415121

PATIENT
  Age: 56 Year
  Sex: Female

DRUGS (6)
  1. DARUNAVIR [Concomitant]
     Active Substance: DARUNAVIR
  2. ATAZANAVIR. [Concomitant]
     Active Substance: ATAZANAVIR
  3. SULFADIAZINE. [Concomitant]
     Active Substance: SULFADIAZINE
  4. PYRIMETHAMINE [Concomitant]
     Active Substance: PYRIMETHAMINE
  5. DEXAMETHASONE. [Concomitant]
     Active Substance: DEXAMETHASONE
  6. DESCOVY [Suspect]
     Active Substance: EMTRICITABINE\TENOFOVIR ALAFENAMIDE FUMARATE
     Indication: PRODUCT USED FOR UNKNOWN INDICATION
     Route: 065

REACTIONS (6)
  - Sepsis [Unknown]
  - Urinary tract inflammation [Unknown]
  - Treatment noncompliance [Fatal]
  - Neurological decompensation [Unknown]
  - Hyponatraemia [Unknown]
  - Bacteraemia [Unknown]
